FAERS Safety Report 18625975 (Version 1)
Quarter: 2020Q4

REPORT INFORMATION
  Report Type: Spontaneous
  Country: US (occurrence: US)
  Receive Date: 20201217
  Receipt Date: 20201217
  Transmission Date: 20210114
  Serious: No
  Sender: FDA-Public Use
  Company Number: US-AMGEN-USASP2020202078

PATIENT
  Age: 73 Year
  Sex: Female

DRUGS (1)
  1. PROLIA [Suspect]
     Active Substance: DENOSUMAB
     Indication: OSTEOPOROSIS POSTMENOPAUSAL
     Dosage: UNK
     Route: 065

REACTIONS (7)
  - Facial pain [Recovered/Resolved]
  - Paraesthesia [Unknown]
  - Photosensitivity reaction [Unknown]
  - Headache [Unknown]
  - Pain in jaw [Unknown]
  - Hypertension [Recovered/Resolved]
  - Nausea [Unknown]
